FAERS Safety Report 4378398-2 (Version None)
Quarter: 2004Q2

REPORT INFORMATION
  Report Type: 
  Country: None (occurrence: None)
  Receive Date: 20040616
  Receipt Date: 20040525
  Transmission Date: 20050107
  Serious: Yes (Other)
  Sender: FDA-Public Use
  Company Number: US-MERCK-0405USA01845

PATIENT
  Age: 56 Year
  Sex: Male
  Weight: 91 kg

DRUGS (2)
  1. VIOXX [Suspect]
     Indication: OSTEOARTHRITIS
     Route: 048
     Dates: start: 20010601, end: 20030401
  2. VIOXX [Suspect]
     Indication: NECK PAIN
     Route: 048
     Dates: start: 20010601, end: 20030401

REACTIONS (2)
  - DUODENAL ULCER HAEMORRHAGE [None]
  - GASTRITIS [None]
